FAERS Safety Report 4541083-8 (Version None)
Quarter: 2004Q4

REPORT INFORMATION
  Report Type: 
  Country: None (occurrence: None)
  Receive Date: 20041228
  Receipt Date: 20041213
  Transmission Date: 20050328
  Serious: No
  Sender: FDA-Public Use
  Company Number: A06200400291

PATIENT
  Age: 71 Year
  Sex: Female

DRUGS (2)
  1. XATRAL - (ALFUZOSIN) - TABLET - 10 MG [Suspect]
     Indication: URINARY RETENTION
     Dosage: 10 MG OD, ORAL
     Route: 048
     Dates: start: 20040920, end: 20041009
  2. CLIVARINE (REVIPARINE) [Concomitant]

REACTIONS (2)
  - HEPATIC PAIN [None]
  - HEPATOCELLULAR DAMAGE [None]
